FAERS Safety Report 17375925 (Version 1)
Quarter: 2020Q1

REPORT INFORMATION
  Report Type: Spontaneous
  Country: FR (occurrence: FR)
  Receive Date: 20200206
  Receipt Date: 20200206
  Transmission Date: 20200409
  Serious: Yes (Hospitalization)
  Sender: FDA-Public Use
  Company Number: FR-TEVA-2020-FR-1181448

PATIENT
  Age: 67 Year
  Sex: Male

DRUGS (14)
  1. THERALENE 4 POUR CENT, SOLUTION BUVABLE EN GOUTTES [Concomitant]
     Active Substance: TRIMEPRAZINE
     Dosage: 40 GTT PER DAY
     Route: 048
  2. PARACETAMOL [Concomitant]
     Active Substance: ACETAMINOPHEN
     Route: 048
  3. DACRYOSERUM, SOLUTION POUR LAVAGE OCULAIRE [Concomitant]
     Route: 047
  4. EZETIMIBE. [Concomitant]
     Active Substance: EZETIMIBE
     Dosage: 10 MG PER DAY
     Route: 048
  5. LEVOTHYROX 25 MICROGRAMMES, COMPRIME SECABLE [Concomitant]
     Active Substance: LEVOTHYROXINE
     Dosage: 25 MICROGRAM
     Route: 048
  6. LANSOYL [Concomitant]
     Active Substance: MINERAL OIL
     Route: 048
  7. VANCOMYCINE (CHLORHYDRATE DE) [Suspect]
     Active Substance: VANCOMYCIN HYDROCHLORIDE
     Indication: DEVICE RELATED INFECTION
     Dosage: 2 GM PER DAY
     Route: 042
     Dates: start: 20191212, end: 20191225
  8. ACIDE FOLIQUE [Concomitant]
     Active Substance: FOLIC ACID
     Dosage: 0.4 MG PER DAY
     Route: 048
  9. ATORVASTATINE CALCIQUE TRIHYDRATEE [Concomitant]
     Dosage: 40 MG PER DAY
     Route: 048
  10. NOVORAPID [Concomitant]
     Active Substance: INSULIN ASPART
     Indication: TYPE 2 DIABETES MELLITUS
     Route: 058
  11. GABAPENTINE [Concomitant]
     Active Substance: GABAPENTIN
     Dosage: 300 MG PER DAY
     Route: 048
  12. CALCIPARINE [Concomitant]
     Active Substance: HEPARIN CALCIUM
     Dosage: 20000 IU PER DAY
     Route: 058
  13. LANSOPRAZOLE. [Concomitant]
     Active Substance: LANSOPRAZOLE
     Dosage: 15 MG PER DAY
     Route: 048
  14. TAMSULOSINE (CHLORHYDRATE DE) [Concomitant]
     Active Substance: TAMSULOSIN HYDROCHLORIDE
     Dosage: 04 MG PER DAY
     Route: 048

REACTIONS (2)
  - Rash maculo-papular [Recovered/Resolved]
  - Face oedema [Recovered/Resolved]

NARRATIVE: CASE EVENT DATE: 20191228
